FAERS Safety Report 11849586 (Version 1)
Quarter: 2015Q4

REPORT INFORMATION
  Report Type: Spontaneous
  Country: None (occurrence: None)
  Receive Date: 20151217
  Receipt Date: 20151217
  Transmission Date: 20160305
  Serious: No
  Sender: FDA-Public Use
  Company Number: None

PATIENT
  Age: 56 Year
  Sex: Female

DRUGS (2)
  1. LORSARTAN 50MG [Suspect]
     Active Substance: LOSARTAN
  2. SIMVASTATIN 40MG [Suspect]
     Active Substance: SIMVASTATIN

REACTIONS (2)
  - Therapeutic response unexpected [None]
  - Weight decreased [None]
